FAERS Safety Report 9626796 (Version 1)
Quarter: 2013Q4

REPORT INFORMATION
  Report Type: Spontaneous
  Country: DE (occurrence: DE)
  Receive Date: 20131016
  Receipt Date: 20131016
  Transmission Date: 20140711
  Serious: Yes (Hospitalization)
  Sender: FDA-Public Use
  Company Number: PHHY2013DE116081

PATIENT
  Sex: Male

DRUGS (1)
  1. TEGRETAL RETARD [Suspect]
     Indication: EPILEPSY
     Dosage: 1 DF(400 MG), DAILY
     Route: 048
     Dates: start: 1998

REACTIONS (3)
  - Cerebrovascular accident [Unknown]
  - Dysarthria [Unknown]
  - Cardiac disorder [Unknown]
